FAERS Safety Report 8834567 (Version 3)
Quarter: 2013Q2

REPORT INFORMATION
  Report Type: Spontaneous
  Country: US (occurrence: US)
  Receive Date: 20121010
  Receipt Date: 20130607
  Transmission Date: 20140414
  Serious: Yes (Hospitalization)
  Sender: FDA-Public Use
  Company Number: US-US-EMD SERONO, INC.-7165434

PATIENT
  Age: 31 Year
  Sex: Male

DRUGS (2)
  1. REBIF [Suspect]
     Indication: MULTIPLE SCLEROSIS
     Route: 058
     Dates: start: 20120914
  2. REBIF [Suspect]
     Route: 058

REACTIONS (8)
  - Multiple sclerosis relapse [Recovered/Resolved]
  - Sleep disorder [Unknown]
  - Candida infection [Recovered/Resolved]
  - Nasopharyngitis [Recovered/Resolved]
  - Bowel movement irregularity [Recovered/Resolved]
  - Dry skin [Not Recovered/Not Resolved]
  - Fatigue [Unknown]
  - Injection site erythema [Unknown]
